FAERS Safety Report 13482986 (Version 2)
Quarter: 2017Q3

REPORT INFORMATION
  Report Type: Report from Study
  Country: US (occurrence: US)
  Receive Date: 20170424
  Receipt Date: 20170728
  Transmission Date: 20171127
  Serious: No
  Sender: FDA-Public Use
  Company Number: US-AMGEN-USASL2017042662

PATIENT
  Sex: Female
  Weight: 82.99 kg

DRUGS (1)
  1. REPATHA [Suspect]
     Active Substance: EVOLOCUMAB
     Indication: BLOOD CHOLESTEROL INCREASED
     Dosage: 140 MG, Q2WK
     Route: 065
     Dates: start: 20170301

REACTIONS (8)
  - Oropharyngeal pain [Unknown]
  - Dysphonia [Unknown]
  - Nasopharyngitis [Unknown]
  - Speech disorder [Unknown]
  - Fatigue [Unknown]
  - Dysgeusia [Recovered/Resolved]
  - Nausea [Recovered/Resolved]
  - Back pain [Recovered/Resolved]
